FAERS Safety Report 5295331-X (Version None)
Quarter: 2007Q2

REPORT INFORMATION
  Report Type: 
  Country: None (occurrence: None)
  Receive Date: 20070405
  Receipt Date: 20070323
  Transmission Date: 20071010
  Serious: Yes (Hospitalization)
  Sender: FDA-Public Use
  Company Number: 238804

PATIENT
  Age: 62 Year
  Sex: Female
  Weight: 94 kg

DRUGS (12)
  1. AVASTIN [Suspect]
     Indication: SMALL CELL LUNG CANCER STAGE UNSPECIFIED
     Dosage: 10 MG/KG, Q28D, UNK
     Dates: start: 20060815
  2. IRINOTECAN HCL [Suspect]
     Indication: SMALL CELL LUNG CANCER STAGE UNSPECIFIED
     Dosage: 33.75 MG/M2, Q28D, UNK
     Dates: start: 20060815
  3. CARBOPLATIN [Suspect]
     Indication: SMALL CELL LUNG CANCER STAGE UNSPECIFIED
     Dosage: 4 AUC, Q28D, UNK
     Dates: start: 20060815
  4. VYTORIN [Concomitant]
  5. ATACAND [Concomitant]
  6. PREMARIN [Concomitant]
  7. LUNESTA [Concomitant]
  8. MELOXICAM [Concomitant]
  9. SERTRALINE (SERTRALINE HYDROCHLORIDE) [Concomitant]
  10. TRAMADOL HCL [Concomitant]
  11. LIDOCAINE VISCOUS (LIDOCAINE HYDROCHLORIDE) [Concomitant]
  12. DURAGESIC-100 [Concomitant]

REACTIONS (10)
  - ASTHENIA [None]
  - BILIARY DILATATION [None]
  - BLOOD GLUCOSE INCREASED [None]
  - DYSPNOEA [None]
  - FAILURE TO THRIVE [None]
  - FATIGUE [None]
  - OESOPHAGEAL ULCER [None]
  - ORAL INTAKE REDUCED [None]
  - RADIATION OESOPHAGITIS [None]
  - WEIGHT DECREASED [None]
